FAERS Safety Report 15681086 (Version 2)
Quarter: 2020Q1

REPORT INFORMATION
  Report Type: Spontaneous
  Country: US (occurrence: US)
  Receive Date: 20181203
  Receipt Date: 20200204
  Transmission Date: 20200409
  Serious: Yes (Hospitalization, Other)
  Sender: FDA-Public Use
  Company Number: US-GLAXOSMITHKLINE-US2018GSK216573

PATIENT
  Age: 77 Year
  Sex: Female

DRUGS (1)
  1. SORIATANE [Suspect]
     Active Substance: ACITRETIN
     Indication: PSORIASIS
     Dosage: 10 MG, UNK

REACTIONS (2)
  - Gallbladder operation [Unknown]
  - Post procedural complication [Unknown]

NARRATIVE: CASE EVENT DATE: 20181109
